FAERS Safety Report 11091744 (Version 2)
Quarter: 2015Q2

REPORT INFORMATION
  Report Type: Report from Study
  Country: AU (occurrence: AU)
  Receive Date: 20150505
  Receipt Date: 20150508
  Transmission Date: 20150821
  Serious: Yes (Hospitalization, Other)
  Sender: FDA-Public Use
  Company Number: AU-ABBVIE-14P-008-1210905-00

PATIENT
  Age: 61 Year
  Sex: Female
  Weight: 75 kg

DRUGS (1)
  1. DUODOPA [Suspect]
     Active Substance: CARBIDOPA\LEVODOPA
     Indication: PARKINSON^S DISEASE
     Route: 050
     Dates: end: 20140328

REACTIONS (9)
  - Small intestinal obstruction [Recovered/Resolved]
  - Small intestinal obstruction [Recovered/Resolved]
  - Parkinsonian crisis [Unknown]
  - Mental disorder [Unknown]
  - Depression [Unknown]
  - Faecaloma [Unknown]
  - Nausea [Unknown]
  - Faecal vomiting [Unknown]
  - Medical device complication [Unknown]

NARRATIVE: CASE EVENT DATE: 20140308
